FAERS Safety Report 7928522-7 (Version None)
Quarter: 2011Q4

REPORT INFORMATION
  Report Type: 
  Country: None (occurrence: None)
  Receive Date: 20111118
  Receipt Date: 20111108
  Transmission Date: 20120403
  Serious: Yes (Hospitalization, Other)
  Sender: FDA-Public Use
  Company Number: US-ELI_LILLY_AND_COMPANY-US201111003683

PATIENT
  Sex: Male

DRUGS (7)
  1. ZYPREXA [Suspect]
     Indication: MENTAL DISORDER
     Dosage: 10 MG, QD
     Route: 048
  2. INSULIN [Concomitant]
  3. ZYPREXA [Suspect]
     Dosage: 10 MG, TID
     Route: 048
  4. TRAMADOL HCL [Concomitant]
  5. XANAX [Concomitant]
  6. ASPIRIN [Concomitant]
  7. IBUPROFEN [Concomitant]

REACTIONS (13)
  - PANCREATIC DISORDER [None]
  - MEMORY IMPAIRMENT [None]
  - OFF LABEL USE [None]
  - DIABETIC COMA [None]
  - BLOOD GLUCOSE DECREASED [None]
  - DRUG WITHDRAWAL SYNDROME [None]
  - ACCIDENTAL OVERDOSE [None]
  - VOMITING [None]
  - VISUAL ACUITY REDUCED [None]
  - OVERDOSE [None]
  - DIABETES MELLITUS [None]
  - AGITATION [None]
  - INJECTION SITE SWELLING [None]
